FAERS Safety Report 8369223-3 (Version None)
Quarter: 2012Q2

REPORT INFORMATION
  Report Type: 
  Country: None (occurrence: None)
  Receive Date: 20120518
  Receipt Date: 20120509
  Transmission Date: 20120825
  Serious: Yes (Hospitalization)
  Sender: FDA-Public Use
  Company Number: GB-ELI_LILLY_AND_COMPANY-GB201110001292

PATIENT
  Sex: Male

DRUGS (3)
  1. FORTEO [Suspect]
     Indication: OSTEOPOROSIS
     Dosage: 20 UG, QD
     Route: 058
     Dates: start: 20110701
  2. FORTEO [Suspect]
     Dosage: 20 UG, QD
     Route: 058
  3. ASPIRIN [Concomitant]
     Dosage: 75 MG, QD

REACTIONS (1)
  - RECTAL HAEMORRHAGE [None]
